FAERS Safety Report 10721091 (Version 2)
Quarter: 2015Q3

REPORT INFORMATION
  Report Type: Spontaneous
  Country: US (occurrence: US)
  Receive Date: 20150119
  Receipt Date: 20150821
  Transmission Date: 20151125
  Serious: Yes (Hospitalization)
  Sender: FDA-Public Use
  Company Number: US-ASTELLAS-2015US001418

PATIENT
  Sex: Female

DRUGS (1)
  1. TARCEVA [Suspect]
     Active Substance: ERLOTINIB HYDROCHLORIDE
     Indication: LUNG NEOPLASM MALIGNANT
     Route: 048
     Dates: start: 20141029

REACTIONS (5)
  - Gastrointestinal inflammation [Unknown]
  - Hepatitis [Unknown]
  - Pulmonary pain [Unknown]
  - Abdominal pain upper [Unknown]
  - Alopecia [Unknown]
